FAERS Safety Report 5258693-5 (Version None)
Quarter: 2007Q1

REPORT INFORMATION
  Report Type: 
  Country: None (occurrence: None)
  Receive Date: 20070305
  Receipt Date: 20070226
  Transmission Date: 20070707
  Serious: Yes (Hospitalization)
  Sender: FDA-Public Use
  Company Number: 2007SP003684

PATIENT
  Age: 45 Year
  Sex: Male

DRUGS (6)
  1. TEMODAL [Suspect]
     Indication: OLIGODENDROGLIOMA
     Dosage: 75 MG/M2;QD;PO;150MG/M2;QD;PO;200 MG/M2;QD;PO
     Route: 048
     Dates: start: 20060921, end: 20061101
  2. TEMODAL [Suspect]
     Indication: OLIGODENDROGLIOMA
     Dosage: 75 MG/M2;QD;PO;150MG/M2;QD;PO;200 MG/M2;QD;PO
     Route: 048
     Dates: start: 20061201, end: 20061206
  3. TEMODAL [Suspect]
     Indication: OLIGODENDROGLIOMA
     Dosage: 75 MG/M2;QD;PO;150MG/M2;QD;PO;200 MG/M2;QD;PO
     Route: 048
     Dates: start: 20061229, end: 20070102
  4. TEMODAL [Suspect]
     Indication: OLIGODENDROGLIOMA
     Dosage: 75 MG/M2;QD;PO;150MG/M2;QD;PO;200 MG/M2;QD;PO
     Route: 048
     Dates: start: 20070123, end: 20070127
  5. RADIOTHERAPY (CON.) [Concomitant]
  6. INTERFERON BETA (CON.) [Concomitant]

REACTIONS (1)
  - PNEUMONIA [None]
